FAERS Safety Report 9695050 (Version 2)
Quarter: 2014Q1

REPORT INFORMATION
  Report Type: Spontaneous
  Country: US (occurrence: US)
  Receive Date: 20131119
  Receipt Date: 20140122
  Transmission Date: 20141002
  Serious: Yes (Other)
  Sender: FDA-Public Use
  Company Number: PHEH2013US023780

PATIENT
  Age: 83 Year
  Sex: Female

DRUGS (13)
  1. RECLAST [Suspect]
     Dosage: UNK UKN, UNK
     Route: 042
  2. RECLAST [Suspect]
     Dosage: UNK UKN, UNK
     Route: 042
  3. RECLAST [Suspect]
     Dosage: UNK UKN, UNK
     Route: 042
  4. RECLAST [Suspect]
     Dosage: UNK UKN, UNK
     Route: 042
  5. RECLAST [Suspect]
     Dosage: UNK UKN, UNK
     Route: 042
     Dates: start: 20131029
  6. PREDNISONE [Concomitant]
     Indication: TRANSMYOCARDIAL REVASCULARISATION
     Dosage: 6 MG, UNK
  7. PREDNISONE [Concomitant]
     Dosage: 60 MG, UNK
  8. PREDNISONE [Concomitant]
     Dosage: 40 MG, UNK
  9. PREDNISONE [Concomitant]
     Dosage: 30 MG, UNK
  10. PLAQUENIL [Concomitant]
     Dosage: UNK
  11. MVI [Concomitant]
     Dosage: UNK
  12. VITAMIN D [Concomitant]
     Dosage: UNK
  13. CALCIUM [Concomitant]
     Dosage: UNK

REACTIONS (15)
  - Hyperglycaemia [Unknown]
  - Renal disorder [Unknown]
  - Blood pressure decreased [Unknown]
  - Limb discomfort [Unknown]
  - Adverse drug reaction [Unknown]
  - Dizziness [Unknown]
  - Headache [Unknown]
  - Migraine with aura [Unknown]
  - Eye disorder [Unknown]
  - Poor quality sleep [Unknown]
  - Apathy [Unknown]
  - Feeling abnormal [Unknown]
  - Neck pain [Unknown]
  - Influenza like illness [Unknown]
  - Pain in extremity [Unknown]
